FAERS Safety Report 22657479 (Version 1)
Quarter: 2023Q2

REPORT INFORMATION
  Report Type: Spontaneous
  Country: US (occurrence: US)
  Receive Date: 20230630
  Receipt Date: 20230630
  Transmission Date: 20230722
  Serious: No
  Sender: FDA-Public Use
  Company Number: US-drreddys-SPO/USA/23/0166480

PATIENT
  Age: 14 Year
  Sex: Female

DRUGS (2)
  1. ZENATANE [Suspect]
     Active Substance: ISOTRETINOIN
     Indication: Product used for unknown indication
     Dosage: RMA ISSUE DATE: 11 SEPTEMBER 2021 12:00:00 AM, 15 AUGUST 2022 05:55:09 PM, 30 MARCH 2023 02:52:28 PM
  2. ZENATANE [Suspect]
     Active Substance: ISOTRETINOIN
     Dosage: RMA ISSUE DATE: 13 OCTOBER 2021 12:00:00 AM, 12 NOVEMBER 2021 12:00:00 AM, 09 SEPTEMBER 2022 06:39:3

REACTIONS (1)
  - Headache [Unknown]
